FAERS Safety Report 4640619-6 (Version None)
Quarter: 2005Q2

REPORT INFORMATION
  Report Type: 
  Country: None (occurrence: None)
  Receive Date: 20050419
  Receipt Date: 20050412
  Transmission Date: 20051028
  Serious: Yes (Life-Threatening, Hospitalization)
  Sender: FDA-Public Use
  Company Number: 2005009146

PATIENT
  Age: 75 Year
  Sex: Female

DRUGS (9)
  1. AROMASIN [Suspect]
     Indication: BREAST CANCER FEMALE
     Dosage: 25 MG (25 MG, DAILY), ORAL
     Route: 048
     Dates: start: 20031106
  2. NIFEDIPINE [Concomitant]
  3. SOTALOL HCL [Concomitant]
  4. SIMVASTATIN [Concomitant]
  5. ACETAMINOPHEN [Concomitant]
  6. POLYVIDONE        (POLIVIDONE) [Concomitant]
  7. METHOTREXATE [Concomitant]
  8. FOLIC ACID [Concomitant]
  9. LORMETAZEPAM           (LORMETAZEPAM) [Concomitant]

REACTIONS (11)
  - ATRIAL FIBRILLATION [None]
  - CARDIAC ARREST [None]
  - DEEP VEIN THROMBOSIS [None]
  - GASTRIC DISORDER [None]
  - HELICOBACTER INFECTION [None]
  - LEIOMYOMA [None]
  - PEPTIC ULCER HAEMORRHAGE [None]
  - SINUS ARREST [None]
  - SYNCOPE [None]
  - SYNCOPE VASOVAGAL [None]
  - VENIPUNCTURE SITE THROMBOSIS [None]
